FAERS Safety Report 9709218 (Version 3)
Quarter: 2014Q1

REPORT INFORMATION
  Report Type: Spontaneous
  Country: US (occurrence: US)
  Receive Date: 20131125
  Receipt Date: 20140129
  Transmission Date: 20141002
  Serious: Yes (Death, Life-Threatening, Hospitalization, Disabling, Other)
  Sender: FDA-Public Use
  Company Number: US-MERCK-1311USA008550

PATIENT
  Age: 25 Year
  Sex: Male
  Weight: 92.7 kg

DRUGS (8)
  1. ISENTRESS [Suspect]
     Indication: HIV INFECTION
     Dosage: 400 MG, BID
     Route: 048
     Dates: end: 20131124
  2. ALLOPURINOL [Concomitant]
     Dosage: 300
     Route: 048
  3. DARUNAVIR [Concomitant]
     Indication: HIV INFECTION
     Dosage: 800 MG, UNK
     Route: 048
     Dates: end: 20131107
  4. TRUVADA [Suspect]
     Indication: HIV INFECTION
     Dosage: 200/800 MG
     Route: 048
     Dates: end: 20131107
  5. RITONAVIR [Concomitant]
     Indication: HIV INFECTION
     Dosage: 100 MG
     Route: 048
     Dates: end: 20131107
  6. FLUCONAZOLE [Concomitant]
     Dosage: 100 MG DAILY
     Route: 048
  7. METOPROLOL [Concomitant]
     Dosage: 50 MG,DAILY
     Route: 048
  8. SULFAMETHOXAZOLE (+) TRIMETHOPRIM [Concomitant]
     Dosage: 800/160 TIW/ MON-WED-FRIDAY.
     Route: 048

REACTIONS (12)
  - Cardiac disorder [Fatal]
  - Lymphoma [Not Recovered/Not Resolved]
  - General symptom [Not Recovered/Not Resolved]
  - Mechanical ventilation [Not Recovered/Not Resolved]
  - Hypotension [Unknown]
  - Endotracheal intubation [Not Recovered/Not Resolved]
  - Pneumonia [Not Recovered/Not Resolved]
  - Shock [Fatal]
  - Acute respiratory distress syndrome [Fatal]
  - Thrombocytopenia [Unknown]
  - Malignant pleural effusion [Not Recovered/Not Resolved]
  - Chest tube insertion [Not Recovered/Not Resolved]
